FAERS Safety Report 7906833-9 (Version None)
Quarter: 2011Q4

REPORT INFORMATION
  Report Type: 
  Country: None (occurrence: None)
  Receive Date: 20111110
  Receipt Date: 20111107
  Transmission Date: 20120403
  Serious: Yes (Death)
  Sender: FDA-Public Use
  Company Number: CA-ASTRAZENECA-2011SE67327

PATIENT
  Age: 52 Year
  Sex: Male
  Weight: 85 kg

DRUGS (6)
  1. SEROQUEL [Suspect]
     Route: 048
  2. LIPITOR [Concomitant]
     Route: 048
  3. FRAGMIN [Concomitant]
     Route: 042
  4. LORAZEPAM [Concomitant]
     Route: 048
  5. CITALOPRAM HYDROBROMIDE [Concomitant]
     Route: 048
  6. RATIO-OXYCOCET [Concomitant]
     Route: 048

REACTIONS (3)
  - BLOOD ETHANOL INCREASED [None]
  - TOXICITY TO VARIOUS AGENTS [None]
  - DRUG LEVEL ABOVE THERAPEUTIC [None]
